FAERS Safety Report 4731446-X (Version None)
Quarter: 2005Q3

REPORT INFORMATION
  Report Type: 
  Country: None (occurrence: None)
  Receive Date: 20050802
  Receipt Date: 20050720
  Transmission Date: 20060218
  Serious: Yes (Other)
  Sender: FDA-Public Use
  Company Number: 2005GB01421

PATIENT
  Sex: Female

DRUGS (11)
  1. NOLVADEX [Suspect]
     Route: 048
  2. PERINDOPRIL [Concomitant]
  3. SERETIDE [Concomitant]
  4. GTN SPRAY [Concomitant]
  5. MONOMAX [Concomitant]
  6. DIGOXIN [Concomitant]
  7. FUROSEMIDE [Concomitant]
  8. ASPIRIN [Concomitant]
  9. THYROXINE [Concomitant]
  10. WARFARIN [Concomitant]
  11. ALBUTEROL SULFATE HFA [Concomitant]

REACTIONS (3)
  - BLINDNESS UNILATERAL [None]
  - CATARACT [None]
  - MACULAR DEGENERATION [None]
